FAERS Safety Report 7913008-6 (Version None)
Quarter: 2011Q4

REPORT INFORMATION
  Report Type: 
  Country: None (occurrence: None)
  Receive Date: 20111114
  Receipt Date: 20111110
  Transmission Date: 20120403
  Serious: Yes (Life-Threatening, Hospitalization, Other)
  Sender: FDA-Public Use
  Company Number: JP-B.I. PHARMACEUTICALS,INC./RIDGEFIELD-2011-BP-24730NB

PATIENT
  Sex: Female
  Weight: 35 kg

DRUGS (10)
  1. MOBIC [Suspect]
     Dosage: 10 MG
     Route: 048
  2. PREDNISOLONE [Suspect]
     Indication: RHEUMATOID ARTHRITIS
     Dosage: 1 MG
     Route: 048
  3. PIMENOL [Concomitant]
     Dosage: 100 MG
     Route: 048
  4. ARICEPT [Concomitant]
     Indication: DEMENTIA
     Dosage: 5 MG
     Route: 048
  5. MAGNESIUM SULFATE [Concomitant]
     Dosage: 990 MG
     Route: 048
  6. ACTONEL [Concomitant]
     Route: 048
  7. PRADAXA [Suspect]
     Indication: ATRIAL FIBRILLATION
     Dosage: 220 MG
     Route: 048
     Dates: start: 20110901, end: 20111018
  8. AMLODIN OD [Concomitant]
     Indication: HYPERTENSION
     Dosage: 5 MG
     Route: 048
  9. RABEPRAZOLE SODIUM [Concomitant]
     Dosage: 10 MG
     Route: 048
  10. MUCOSTA [Concomitant]
     Dosage: 300 MG
     Route: 048

REACTIONS (4)
  - LOWER GASTROINTESTINAL HAEMORRHAGE [None]
  - ALTERED STATE OF CONSCIOUSNESS [None]
  - ANAEMIA [None]
  - ACTIVATED PARTIAL THROMBOPLASTIN TIME PROLONGED [None]
